FAERS Safety Report 5289937-1 (Version None)
Quarter: 2007Q1

REPORT INFORMATION
  Report Type: 
  Country: None (occurrence: None)
  Receive Date: 20070116
  Receipt Date: 20060605
  Transmission Date: 20070707
  Serious: Yes (Other)
  Sender: FDA-Public Use
  Company Number: HQWYE989907JUN06

PATIENT
  Age: 66 Year
  Sex: Female

DRUGS (6)
  1. PREMPRO [Suspect]
  2. CYCRIN [Suspect]
  3. ESTRADERM [Suspect]
  4. ESTRATEST [Suspect]
  5. PREMARIN [Suspect]
  6. PROVERA [Suspect]

REACTIONS (1)
  - BREAST CANCER [None]
